FAERS Safety Report 14740997 (Version 2)
Quarter: 2018Q4

REPORT INFORMATION
  Report Type: Report from Study
  Country: AT (occurrence: AT)
  Receive Date: 20180410
  Receipt Date: 20181221
  Transmission Date: 20190204
  Serious: Yes (Hospitalization)
  Sender: FDA-Public Use
  Company Number: AT-CELGENEUS-AUT-20180309780

PATIENT
  Age: 65 Year
  Sex: Female
  Weight: 130 kg

DRUGS (2)
  1. ABRAXANE [Suspect]
     Active Substance: PACLITAXEL
     Indication: PANCREATIC CARCINOMA
     Dosage: 125 MILLIGRAM
     Route: 041
     Dates: start: 20160620, end: 20161013
  2. GEMCITABINE [Suspect]
     Active Substance: GEMCITABINE\GEMCITABINE HYDROCHLORIDE
     Indication: PANCREATIC CARCINOMA
     Dosage: 1000 MILLIGRAM/KILOGRAM
     Route: 065
     Dates: start: 20160620, end: 20161013

REACTIONS (10)
  - Hypokalaemia [Recovered/Resolved]
  - Pancreatic carcinoma [Unknown]
  - Hypomagnesaemia [Recovered/Resolved]
  - Blood urea increased [Recovered/Resolved]
  - Febrile neutropenia [Recovered/Resolved]
  - Extravasation [Recovered/Resolved]
  - Blood creatinine increased [Recovered/Resolved]
  - Neutropenia [Recovered/Resolved]
  - Nausea [Recovered/Resolved]
  - Febrile neutropenia [Recovered/Resolved]

NARRATIVE: CASE EVENT DATE: 20160621
